FAERS Safety Report 6732395-8 (Version None)
Quarter: 2010Q2

REPORT INFORMATION
  Report Type: 
  Country: None (occurrence: None)
  Receive Date: 20100519
  Receipt Date: 20100511
  Transmission Date: 20101027
  Serious: Yes (Hospitalization)
  Sender: FDA-Public Use
  Company Number: JP-MERCK-1005USA01685

PATIENT
  Age: 36 Year
  Sex: Female

DRUGS (1)
  1. COZAAR [Suspect]
     Indication: PROTEINURIA
     Route: 048
     Dates: start: 20100401, end: 20100501

REACTIONS (1)
  - AGRANULOCYTOSIS [None]
